FAERS Safety Report 4991523-5 (Version None)
Quarter: 2006Q2

REPORT INFORMATION
  Report Type: 
  Country: None (occurrence: None)
  Receive Date: 20060502
  Receipt Date: 20060420
  Transmission Date: 20061013
  Serious: Yes (Other)
  Sender: FDA-Public Use
  Company Number: 2006-04-0180

PATIENT
  Age: 59 Year
  Sex: Female

DRUGS (7)
  1. NASONEX [Suspect]
     Indication: HYPERSENSITIVITY
     Dosage: 2 SPR/NAR BID NASAL SPRA
     Route: 045
     Dates: start: 20060208, end: 20060403
  2. NASONEX [Suspect]
     Indication: SINUS DISORDER
     Dosage: 2 SPR/NAR BID NASAL SPRA
     Route: 045
     Dates: start: 20060208, end: 20060403
  3. NASONEX [Suspect]
     Indication: VERTIGO
     Dosage: 2 SPR/NAR BID NASAL SPRA
     Route: 045
     Dates: start: 20060208, end: 20060403
  4. ANTIVERT [Suspect]
     Indication: DIZZINESS
     Dates: start: 20060208, end: 20060201
  5. ANTIBIOTIC [Suspect]
     Indication: SINUSITIS
     Dosage: ORAL
     Route: 048
  6. CALCIUM GLUCONATE [Concomitant]
  7. VITAMIN D [Concomitant]

REACTIONS (24)
  - ABASIA [None]
  - ANXIETY [None]
  - ARTHRALGIA [None]
  - ASTHENIA [None]
  - ASTHMA [None]
  - CRYING [None]
  - DEPRESSION [None]
  - DIARRHOEA [None]
  - DISTURBANCE IN ATTENTION [None]
  - DIZZINESS [None]
  - DRUG INTOLERANCE [None]
  - DYSPEPSIA [None]
  - EMOTIONAL DISORDER [None]
  - FLATULENCE [None]
  - FREQUENT BOWEL MOVEMENTS [None]
  - GASTROOESOPHAGEAL REFLUX DISEASE [None]
  - HYPOGLYCAEMIA [None]
  - HYPOKINESIA [None]
  - MYALGIA [None]
  - MYOCARDIAL INFARCTION [None]
  - REFUSAL OF TREATMENT BY PATIENT [None]
  - SLEEP APNOEA SYNDROME [None]
  - SOMNOLENCE [None]
  - STOMACH DISCOMFORT [None]
